FAERS Safety Report 7626746-X (Version None)
Quarter: 2011Q3

REPORT INFORMATION
  Report Type: 
  Country: None (occurrence: None)
  Receive Date: 20110721
  Receipt Date: 20110708
  Transmission Date: 20111222
  Serious: Yes (Other)
  Sender: FDA-Public Use
  Company Number: FR-ELI_LILLY_AND_COMPANY-FR201107002201

PATIENT
  Sex: Female

DRUGS (4)
  1. CRESTOR [Concomitant]
  2. BISOPROLOL FUMARATE AND HYDROCHLOROTHIAZIDE [Concomitant]
  3. PROZAC [Suspect]
     Dosage: UNK
     Route: 048
     Dates: start: 19980101, end: 20010101
  4. MEDIATOR [Concomitant]
     Indication: OVERWEIGHT
     Dosage: 3 DF, UNK
     Dates: start: 20000101, end: 20100301

REACTIONS (2)
  - MITRAL VALVE INCOMPETENCE [None]
  - AORTIC VALVE INCOMPETENCE [None]
